FAERS Safety Report 4844506-X (Version None)
Quarter: 2005Q4

REPORT INFORMATION
  Report Type: 
  Country: None (occurrence: None)
  Receive Date: 20051203
  Receipt Date: 20050808
  Transmission Date: 20060501
  Serious: Yes (Hospitalization)
  Sender: FDA-Public Use
  Company Number: PHNU2005DE02821

PATIENT
  Age: 88 Year
  Sex: Female
  Weight: 75 kg

DRUGS (2)
  1. VISUDYNE [Suspect]
     Indication: CHOROIDAL NEOVASCULARISATION
     Dosage: 11.4 MG, ONCE/SINGLE
     Route: 042
     Dates: start: 20050801, end: 20050801
  2. DICLOFENAC [Suspect]
     Indication: BACK PAIN
     Route: 030

REACTIONS (5)
  - BACK PAIN [None]
  - CONDITION AGGRAVATED [None]
  - PUSTULAR PSORIASIS [None]
  - RASH [None]
  - SCAB [None]
